FAERS Safety Report 11312060 (Version 2)
Quarter: 2015Q4

REPORT INFORMATION
  Report Type: Spontaneous
  Country: US (occurrence: US)
  Receive Date: 20150727
  Receipt Date: 20151022
  Transmission Date: 20160304
  Serious: Yes (Hospitalization)
  Sender: FDA-Public Use
  Company Number: US-JNJFOC-20150715111

PATIENT
  Age: 60 Year
  Sex: Female
  Weight: 61.69 kg

DRUGS (11)
  1. ASPIRIN. [Suspect]
     Active Substance: ASPIRIN
     Indication: ANTIPLATELET THERAPY
     Route: 065
     Dates: end: 20150702
  2. CILOSTAZOL. [Suspect]
     Active Substance: CILOSTAZOL
     Indication: ARTERIAL DISORDER
     Route: 065
     Dates: end: 20150702
  3. CILOSTAZOL. [Suspect]
     Active Substance: CILOSTAZOL
     Indication: PERIPHERAL ARTERIAL OCCLUSIVE DISEASE
     Route: 065
     Dates: end: 20150702
  4. PLAVIX [Suspect]
     Active Substance: CLOPIDOGREL BISULFATE
     Indication: PERIPHERAL ARTERIAL OCCLUSIVE DISEASE
     Route: 065
     Dates: end: 20150702
  5. HEPARIN [Suspect]
     Active Substance: HEPARIN SODIUM
     Indication: DEEP VEIN THROMBOSIS
     Route: 048
     Dates: start: 20150619, end: 20150702
  6. CILOSTAZOL. [Suspect]
     Active Substance: CILOSTAZOL
     Indication: ANTIPLATELET THERAPY
     Route: 065
     Dates: end: 20150702
  7. ASPIRIN. [Suspect]
     Active Substance: ASPIRIN
     Indication: ARTERIAL DISORDER
     Route: 065
     Dates: end: 20150702
  8. ASPIRIN. [Suspect]
     Active Substance: ASPIRIN
     Indication: PERIPHERAL ARTERIAL OCCLUSIVE DISEASE
     Route: 065
     Dates: end: 20150702
  9. PLAVIX [Suspect]
     Active Substance: CLOPIDOGREL BISULFATE
     Indication: ANTIPLATELET THERAPY
     Route: 065
     Dates: end: 20150702
  10. PLAVIX [Suspect]
     Active Substance: CLOPIDOGREL BISULFATE
     Indication: ARTERIAL DISORDER
     Route: 065
     Dates: end: 20150702
  11. XARELTO [Suspect]
     Active Substance: RIVAROXABAN
     Indication: DEEP VEIN THROMBOSIS
     Route: 048
     Dates: start: 20150619, end: 20150702

REACTIONS (5)
  - Tongue haematoma [Recovered/Resolved]
  - Anaemia [Not Recovered/Not Resolved]
  - Dyspnoea [Unknown]
  - Tongue haemorrhage [Recovered/Resolved]
  - Haematoma [Recovered/Resolved]

NARRATIVE: CASE EVENT DATE: 2015
